FAERS Safety Report 8070645-9 (Version None)
Quarter: 2012Q1

REPORT INFORMATION
  Report Type: 
  Country: None (occurrence: None)
  Receive Date: 20120125
  Receipt Date: 20120119
  Transmission Date: 20120608
  Serious: Yes (Hospitalization, Other)
  Sender: FDA-Public Use
  Company Number: PHEH2011US010230

PATIENT
  Sex: Male
  Weight: 63 kg

DRUGS (5)
  1. EXJADE [Suspect]
     Indication: HAEMATOPOIETIC NEOPLASM
     Dosage: 1250 MG, QD
     Route: 048
  2. ALBUTEROL SULFATE AND IPRATROPIUM BROMIDE [Concomitant]
     Indication: CHRONIC OBSTRUCTIVE PULMONARY DISEASE
  3. NIFEDIPINE [Concomitant]
     Indication: RAYNAUD'S PHENOMENON
     Dosage: 300 MG, QD
     Route: 048
  4. GABAPENTIN [Concomitant]
     Indication: RESTLESS LEGS SYNDROME
     Dosage: 400 MG, QD
     Route: 048
  5. EPOETIN ALFA [Concomitant]
     Indication: ANAEMIA
     Dosage: 600000 U, PRN
     Route: 058

REACTIONS (5)
  - DIARRHOEA [None]
  - CHEST PAIN [None]
  - PNEUMONIA [None]
  - CHRONIC OBSTRUCTIVE PULMONARY DISEASE [None]
  - PYREXIA [None]
